FAERS Safety Report 6795927-X (Version None)
Quarter: 2010Q2

REPORT INFORMATION
  Report Type: 
  Country: None (occurrence: None)
  Receive Date: 20100625
  Receipt Date: 20100615
  Transmission Date: 20101027
  Serious: Yes (Other)
  Sender: FDA-Public Use
  Company Number: B0657974A

PATIENT
  Age: 45 Year
  Sex: Female

DRUGS (9)
  1. REQUIP [Suspect]
     Indication: PARKINSON'S DISEASE
     Dosage: 8MG TWICE PER DAY
     Route: 048
  2. SINEMET [Suspect]
     Indication: PARKINSON'S DISEASE
     Dosage: .5TAB FIVE TIMES PER DAY
     Route: 048
  3. MODOPAR [Suspect]
     Indication: PARKINSON'S DISEASE
     Dosage: 125MG UNKNOWN
  4. MANTADIX [Suspect]
     Indication: PARKINSON'S DISEASE
     Route: 065
  5. SELEGILINE [Suspect]
     Indication: PARKINSON'S DISEASE
     Route: 065
  6. MYOLASTAN [Suspect]
     Indication: PARKINSON'S DISEASE
     Route: 065
  7. ANAFRANIL [Suspect]
     Indication: PARKINSON'S DISEASE
     Dosage: 10MG PER DAY
     Route: 065
  8. QUININE AND VITAMIN C [Suspect]
     Indication: PARKINSON'S DISEASE
     Route: 065
  9. BROMAZEPAM [Suspect]
     Indication: PARKINSON'S DISEASE
     Dosage: .25UNIT THREE TIMES PER DAY
     Route: 065

REACTIONS (2)
  - ABORTION INDUCED [None]
  - DRUG EXPOSURE DURING PREGNANCY [None]
